FAERS Safety Report 7423521-6 (Version None)
Quarter: 2011Q2

REPORT INFORMATION
  Report Type: 
  Country: None (occurrence: None)
  Receive Date: 20110419
  Receipt Date: 20110407
  Transmission Date: 20111010
  Serious: Yes (Other)
  Sender: FDA-Public Use
  Company Number: PHHY2011US29617

PATIENT
  Sex: Female

DRUGS (6)
  1. LEVOTHYROXINE SODIUM [Concomitant]
  2. HERBAL PREPARATION [Concomitant]
  3. MAGNESIUM [Concomitant]
  4. FEMARA [Suspect]
     Indication: NEOPLASM MALIGNANT
     Dosage: 2.5 MG, QD
  5. FISH OIL [Concomitant]
  6. PROPRANOLOL [Concomitant]

REACTIONS (1)
  - BLEPHARAL PAPILLOMA [None]
